FAERS Safety Report 19325757 (Version 6)
Quarter: 2025Q2

REPORT INFORMATION
  Report Type: Spontaneous
  Country: CA (occurrence: CA)
  Receive Date: 20210528
  Receipt Date: 20250528
  Transmission Date: 20250717
  Serious: Yes (Hospitalization, Other)
  Sender: COVIS PHARMA GMBH
  Company Number: CA-TAKEDA-2019TUS064237

PATIENT
  Age: 38 Year
  Sex: Male

DRUGS (253)
  1. CICLESONIDE [Suspect]
     Active Substance: CICLESONIDE
     Indication: Product used for unknown indication
  2. CICLESONIDE [Suspect]
     Active Substance: CICLESONIDE
  3. CICLESONIDE [Suspect]
     Active Substance: CICLESONIDE
  4. CICLESONIDE [Suspect]
     Active Substance: CICLESONIDE
  5. CICLESONIDE [Suspect]
     Active Substance: CICLESONIDE
  6. CICLESONIDE [Suspect]
     Active Substance: CICLESONIDE
  7. CICLESONIDE [Suspect]
     Active Substance: CICLESONIDE
  8. CICLESONIDE [Suspect]
     Active Substance: CICLESONIDE
  9. CICLESONIDE [Suspect]
     Active Substance: CICLESONIDE
  10. CICLESONIDE [Suspect]
     Active Substance: CICLESONIDE
  11. CICLESONIDE [Suspect]
     Active Substance: CICLESONIDE
  12. SYMBICORT [Suspect]
     Active Substance: BUDESONIDE\FORMOTEROL FUMARATE DIHYDRATE
     Indication: Product used for unknown indication
  13. SYMBICORT [Suspect]
     Active Substance: BUDESONIDE\FORMOTEROL FUMARATE DIHYDRATE
  14. SYMBICORT [Suspect]
     Active Substance: BUDESONIDE\FORMOTEROL FUMARATE DIHYDRATE
  15. SYMBICORT [Suspect]
     Active Substance: BUDESONIDE\FORMOTEROL FUMARATE DIHYDRATE
  16. SYMBICORT [Suspect]
     Active Substance: BUDESONIDE\FORMOTEROL FUMARATE DIHYDRATE
  17. SYMBICORT [Suspect]
     Active Substance: BUDESONIDE\FORMOTEROL FUMARATE DIHYDRATE
  18. SYMBICORT [Suspect]
     Active Substance: BUDESONIDE\FORMOTEROL FUMARATE DIHYDRATE
  19. SYMBICORT [Suspect]
     Active Substance: BUDESONIDE\FORMOTEROL FUMARATE DIHYDRATE
  20. SYMBICORT [Suspect]
     Active Substance: BUDESONIDE\FORMOTEROL FUMARATE DIHYDRATE
  21. SYMBICORT [Suspect]
     Active Substance: BUDESONIDE\FORMOTEROL FUMARATE DIHYDRATE
  22. SYMBICORT [Suspect]
     Active Substance: BUDESONIDE\FORMOTEROL FUMARATE DIHYDRATE
  23. SYMBICORT [Suspect]
     Active Substance: BUDESONIDE\FORMOTEROL FUMARATE DIHYDRATE
  24. SYMBICORT [Suspect]
     Active Substance: BUDESONIDE\FORMOTEROL FUMARATE DIHYDRATE
  25. BUDESONIDE\FORMOTEROL FUMARATE [Suspect]
     Active Substance: BUDESONIDE\FORMOTEROL FUMARATE
  26. BUDESONIDE\FORMOTEROL FUMARATE [Suspect]
     Active Substance: BUDESONIDE\FORMOTEROL FUMARATE
  27. BUDESONIDE\FORMOTEROL FUMARATE [Suspect]
     Active Substance: BUDESONIDE\FORMOTEROL FUMARATE
  28. ENTYVIO [Suspect]
     Active Substance: VEDOLIZUMAB
     Indication: Colitis ulcerative
     Route: 042
  29. ENTYVIO [Suspect]
     Active Substance: VEDOLIZUMAB
     Indication: Colitis ulcerative
     Route: 048
     Dates: start: 20030630
  30. ENTYVIO [Suspect]
     Active Substance: VEDOLIZUMAB
     Route: 048
     Dates: start: 20030630
  31. ENTYVIO [Suspect]
     Active Substance: VEDOLIZUMAB
     Route: 048
     Dates: start: 20030630
  32. ENTYVIO [Suspect]
     Active Substance: VEDOLIZUMAB
     Route: 048
     Dates: start: 20030630
  33. ENTYVIO [Suspect]
     Active Substance: VEDOLIZUMAB
     Route: 048
     Dates: start: 20030630
  34. ENTYVIO [Suspect]
     Active Substance: VEDOLIZUMAB
     Route: 048
     Dates: start: 20030630
  35. ENTYVIO [Suspect]
     Active Substance: VEDOLIZUMAB
     Route: 048
     Dates: start: 20030630
  36. ENTYVIO [Suspect]
     Active Substance: VEDOLIZUMAB
     Route: 048
     Dates: start: 20030630
  37. ENTYVIO [Suspect]
     Active Substance: VEDOLIZUMAB
     Route: 048
     Dates: start: 20030630
  38. ENTYVIO [Suspect]
     Active Substance: VEDOLIZUMAB
     Route: 048
     Dates: start: 20030630
  39. ENTYVIO [Suspect]
     Active Substance: VEDOLIZUMAB
     Route: 048
     Dates: start: 20030630
  40. ENTYVIO [Suspect]
     Active Substance: VEDOLIZUMAB
     Route: 048
     Dates: start: 20030630
  41. ENTYVIO [Suspect]
     Active Substance: VEDOLIZUMAB
     Route: 048
     Dates: start: 20030630
  42. ENTYVIO [Suspect]
     Active Substance: VEDOLIZUMAB
     Route: 048
     Dates: start: 20030630
  43. ENTYVIO [Suspect]
     Active Substance: VEDOLIZUMAB
     Route: 042
  44. ENTYVIO [Suspect]
     Active Substance: VEDOLIZUMAB
     Route: 042
  45. ENTYVIO [Suspect]
     Active Substance: VEDOLIZUMAB
     Route: 042
  46. ENTYVIO [Suspect]
     Active Substance: VEDOLIZUMAB
     Route: 042
  47. ENTYVIO [Suspect]
     Active Substance: VEDOLIZUMAB
     Route: 042
  48. ENTYVIO [Suspect]
     Active Substance: VEDOLIZUMAB
     Route: 042
  49. ENTYVIO [Suspect]
     Active Substance: VEDOLIZUMAB
     Route: 042
  50. ENTYVIO [Suspect]
     Active Substance: VEDOLIZUMAB
     Route: 042
  51. ENTYVIO [Suspect]
     Active Substance: VEDOLIZUMAB
     Route: 042
  52. SINGULAIR [Suspect]
     Active Substance: MONTELUKAST SODIUM
     Indication: Asthma
     Dosage: 10 MILLIGRAM, QD
     Dates: start: 2018
  53. SINGULAIR [Suspect]
     Active Substance: MONTELUKAST SODIUM
     Dosage: 20 MILLIGRAM, QD
  54. SINGULAIR [Suspect]
     Active Substance: MONTELUKAST SODIUM
     Dosage: 20 MILLIGRAM, QD
  55. SINGULAIR [Suspect]
     Active Substance: MONTELUKAST SODIUM
     Dosage: 10 MILLIGRAM, QD
  56. SINGULAIR [Suspect]
     Active Substance: MONTELUKAST SODIUM
     Dosage: 10 MILLIGRAM, QD
  57. SINGULAIR [Suspect]
     Active Substance: MONTELUKAST SODIUM
     Dosage: 10 MILLIGRAM, QD
  58. SINGULAIR [Suspect]
     Active Substance: MONTELUKAST SODIUM
     Dosage: 10 MILLIGRAM, QD
  59. SINGULAIR [Suspect]
     Active Substance: MONTELUKAST SODIUM
     Dosage: 10 MILLIGRAM, QD
  60. SINGULAIR [Suspect]
     Active Substance: MONTELUKAST SODIUM
     Dosage: 10 MILLIGRAM, QD
  61. SINGULAIR [Suspect]
     Active Substance: MONTELUKAST SODIUM
     Dosage: 10 MILLIGRAM, QD
  62. SINGULAIR [Suspect]
     Active Substance: MONTELUKAST SODIUM
     Dosage: 10 MILLIGRAM, QD
  63. SINGULAIR [Suspect]
     Active Substance: MONTELUKAST SODIUM
     Dosage: 10 MILLIGRAM, QD
  64. SINGULAIR [Suspect]
     Active Substance: MONTELUKAST SODIUM
     Dosage: 10 MILLIGRAM, QD
  65. SINGULAIR [Suspect]
     Active Substance: MONTELUKAST SODIUM
     Route: 065
  66. FOLIC ACID [Suspect]
     Active Substance: FOLIC ACID
     Indication: Product used for unknown indication
     Dosage: 5 MILLIGRAM, QD
     Route: 048
  67. FOLIC ACID [Suspect]
     Active Substance: FOLIC ACID
     Indication: Product used for unknown indication
     Dosage: 5 MILLIGRAM, QD
     Route: 048
  68. FOLIC ACID [Suspect]
     Active Substance: FOLIC ACID
     Dosage: 5 MILLIGRAM, QD
     Route: 048
  69. FOLIC ACID [Suspect]
     Active Substance: FOLIC ACID
     Dosage: 5 MILLIGRAM, QD
     Route: 048
  70. FOLIC ACID [Suspect]
     Active Substance: FOLIC ACID
     Dosage: 5 MILLIGRAM, QD
     Route: 048
  71. FOLIC ACID [Suspect]
     Active Substance: FOLIC ACID
     Dosage: 5 MILLIGRAM, QD
     Route: 048
  72. FOLIC ACID [Suspect]
     Active Substance: FOLIC ACID
     Dosage: 5 MILLIGRAM, QD
     Route: 048
  73. FOLIC ACID [Suspect]
     Active Substance: FOLIC ACID
     Dosage: 5 MILLIGRAM, QD
     Route: 048
  74. FOLIC ACID [Suspect]
     Active Substance: FOLIC ACID
     Dosage: 5 MILLIGRAM, QD
     Route: 048
  75. FOLIC ACID [Suspect]
     Active Substance: FOLIC ACID
     Dosage: 5 MILLIGRAM, QD
     Route: 048
  76. FOLIC ACID [Suspect]
     Active Substance: FOLIC ACID
     Dosage: 5 MILLIGRAM, QD
     Route: 048
  77. FOLIC ACID [Suspect]
     Active Substance: FOLIC ACID
     Dosage: 5 MILLIGRAM, QD
     Route: 048
  78. METHOTREXATE [Suspect]
     Active Substance: METHOTREXATE
     Indication: Vasculitis
     Dosage: 15 MILLIGRAM, QW
  79. METHOTREXATE [Suspect]
     Active Substance: METHOTREXATE
     Dosage: 25 MILLIGRAM, QW
     Route: 048
     Dates: start: 2018
  80. METHOTREXATE [Suspect]
     Active Substance: METHOTREXATE
     Route: 048
  81. METHOTREXATE [Suspect]
     Active Substance: METHOTREXATE
     Dosage: 15 MILLIGRAM, QW
  82. METHOTREXATE [Suspect]
     Active Substance: METHOTREXATE
     Dosage: 25 MILLIGRAM, QW
     Route: 048
  83. METHOTREXATE [Suspect]
     Active Substance: METHOTREXATE
     Dosage: 15 MILLIGRAM, QW
  84. METHOTREXATE [Suspect]
     Active Substance: METHOTREXATE
     Dosage: 25 MILLIGRAM, QW
     Route: 048
  85. METHOTREXATE [Suspect]
     Active Substance: METHOTREXATE
     Dosage: 15 MILLIGRAM, QW
  86. METHOTREXATE [Suspect]
     Active Substance: METHOTREXATE
     Dosage: 25 MILLIGRAM, QW
     Route: 048
  87. METHOTREXATE [Suspect]
     Active Substance: METHOTREXATE
     Dosage: 15 MILLIGRAM, QW
  88. METHOTREXATE [Suspect]
     Active Substance: METHOTREXATE
     Dosage: 25 MILLIGRAM, QW
     Route: 048
  89. METHOTREXATE [Suspect]
     Active Substance: METHOTREXATE
     Dosage: 25 MILLIGRAM, QW
     Route: 048
  90. METHOTREXATE [Suspect]
     Active Substance: METHOTREXATE
     Dosage: 25 MILLIGRAM, QW
     Route: 048
  91. METHOTREXATE [Suspect]
     Active Substance: METHOTREXATE
     Dosage: 15 MILLIGRAM, QW
  92. METHOTREXATE [Suspect]
     Active Substance: METHOTREXATE
     Dosage: 25 MILLIGRAM, QW
     Route: 048
  93. METHOTREXATE [Suspect]
     Active Substance: METHOTREXATE
     Dosage: 15 MILLIGRAM, QW
  94. METHOTREXATE [Suspect]
     Active Substance: METHOTREXATE
     Dosage: 25 MILLIGRAM, QW
     Route: 048
  95. METHOTREXATE [Suspect]
     Active Substance: METHOTREXATE
     Dosage: 15 MILLIGRAM, QW
  96. METHOTREXATE [Suspect]
     Active Substance: METHOTREXATE
     Dosage: 15 MILLIGRAM, QW
  97. METHOTREXATE [Suspect]
     Active Substance: METHOTREXATE
     Dosage: 15 MILLIGRAM, QW
  98. PREDNISONE [Suspect]
     Active Substance: PREDNISONE
     Indication: Product used for unknown indication
  99. PREDNISONE [Suspect]
     Active Substance: PREDNISONE
     Dosage: 10 MILLIGRAM, QD
  100. PREDNISONE [Suspect]
     Active Substance: PREDNISONE
  101. PREDNISONE [Suspect]
     Active Substance: PREDNISONE
     Dates: start: 2018
  102. PREDNISONE [Suspect]
     Active Substance: PREDNISONE
  103. PREDNISONE [Suspect]
     Active Substance: PREDNISONE
  104. PREDNISONE [Suspect]
     Active Substance: PREDNISONE
  105. PREDNISONE [Suspect]
     Active Substance: PREDNISONE
     Dosage: 8/12.5 MG DAILY
     Dates: start: 200908
  106. PREDNISONE [Suspect]
     Active Substance: PREDNISONE
  107. PREDNISONE [Suspect]
     Active Substance: PREDNISONE
  108. PREDNISONE [Suspect]
     Active Substance: PREDNISONE
  109. PREDNISONE [Suspect]
     Active Substance: PREDNISONE
  110. PREDNISONE [Suspect]
     Active Substance: PREDNISONE
  111. PREDNISONE [Suspect]
     Active Substance: PREDNISONE
  112. PREDNISONE [Suspect]
     Active Substance: PREDNISONE
  113. PREDNISONE [Suspect]
     Active Substance: PREDNISONE
  114. PREDNISONE [Suspect]
     Active Substance: PREDNISONE
  115. PREDNISONE [Suspect]
     Active Substance: PREDNISONE
  116. PREDNISONE [Suspect]
     Active Substance: PREDNISONE
  117. PREDNISONE [Suspect]
     Active Substance: PREDNISONE
  118. PREDNISONE [Suspect]
     Active Substance: PREDNISONE
  119. PREDNISONE [Suspect]
     Active Substance: PREDNISONE
  120. PREDNISONE [Suspect]
     Active Substance: PREDNISONE
  121. PREDNISONE [Suspect]
     Active Substance: PREDNISONE
  122. PREDNISONE [Suspect]
     Active Substance: PREDNISONE
  123. PREDNISONE [Suspect]
     Active Substance: PREDNISONE
  124. PREDNISONE [Suspect]
     Active Substance: PREDNISONE
  125. PREDNISONE [Suspect]
     Active Substance: PREDNISONE
  126. PREDNISONE [Suspect]
     Active Substance: PREDNISONE
  127. PREDNISONE [Suspect]
     Active Substance: PREDNISONE
  128. PREDNISONE [Suspect]
     Active Substance: PREDNISONE
  129. PREDNISONE [Suspect]
     Active Substance: PREDNISONE
  130. PREDNISONE [Suspect]
     Active Substance: PREDNISONE
  131. PREDNISONE [Suspect]
     Active Substance: PREDNISONE
  132. PREDNISONE [Suspect]
     Active Substance: PREDNISONE
  133. PREDNISONE [Suspect]
     Active Substance: PREDNISONE
  134. PREDNISONE [Suspect]
     Active Substance: PREDNISONE
  135. PREDNISONE [Suspect]
     Active Substance: PREDNISONE
  136. PREDNISONE [Suspect]
     Active Substance: PREDNISONE
  137. PREDNISONE [Suspect]
     Active Substance: PREDNISONE
  138. PREDNISONE [Suspect]
     Active Substance: PREDNISONE
  139. PREDNISONE [Suspect]
     Active Substance: PREDNISONE
  140. PREDNISONE [Suspect]
     Active Substance: PREDNISONE
  141. PREDNISONE [Suspect]
     Active Substance: PREDNISONE
  142. PREDNISONE [Suspect]
     Active Substance: PREDNISONE
  143. PREDNISONE [Suspect]
     Active Substance: PREDNISONE
  144. PREDNISONE [Suspect]
     Active Substance: PREDNISONE
  145. PREDNISONE [Suspect]
     Active Substance: PREDNISONE
  146. PREDNISONE [Suspect]
     Active Substance: PREDNISONE
  147. PREDNISONE [Suspect]
     Active Substance: PREDNISONE
  148. PREDNISONE [Suspect]
     Active Substance: PREDNISONE
  149. PREDNISONE [Suspect]
     Active Substance: PREDNISONE
  150. PREDNISONE [Suspect]
     Active Substance: PREDNISONE
  151. PREDNISONE [Suspect]
     Active Substance: PREDNISONE
  152. PREDNISONE [Suspect]
     Active Substance: PREDNISONE
  153. PREDNISONE [Suspect]
     Active Substance: PREDNISONE
  154. PREDNISONE [Suspect]
     Active Substance: PREDNISONE
  155. PREDNISONE [Suspect]
     Active Substance: PREDNISONE
  156. PREDNISONE [Suspect]
     Active Substance: PREDNISONE
  157. PREDNISONE [Suspect]
     Active Substance: PREDNISONE
  158. PREDNISONE [Suspect]
     Active Substance: PREDNISONE
  159. PREDNISONE [Suspect]
     Active Substance: PREDNISONE
  160. PREDNISONE [Suspect]
     Active Substance: PREDNISONE
  161. PREDNISONE [Suspect]
     Active Substance: PREDNISONE
  162. PREDNISONE [Suspect]
     Active Substance: PREDNISONE
  163. ALBUTEROL SULFATE [Suspect]
     Active Substance: ALBUTEROL SULFATE
     Indication: Product used for unknown indication
  164. ALBUTEROL SULFATE [Suspect]
     Active Substance: ALBUTEROL SULFATE
     Dosage: 10 MILLIGRAM, BID
  165. ALBUTEROL SULFATE [Suspect]
     Active Substance: ALBUTEROL SULFATE
     Dosage: 10 MILLIGRAM, BID
  166. ALBUTEROL SULFATE [Suspect]
     Active Substance: ALBUTEROL SULFATE
  167. ALBUTEROL SULFATE [Suspect]
     Active Substance: ALBUTEROL SULFATE
  168. ALBUTEROL SULFATE [Suspect]
     Active Substance: ALBUTEROL SULFATE
  169. ALBUTEROL SULFATE [Suspect]
     Active Substance: ALBUTEROL SULFATE
  170. ALBUTEROL SULFATE [Suspect]
     Active Substance: ALBUTEROL SULFATE
  171. ALBUTEROL SULFATE [Suspect]
     Active Substance: ALBUTEROL SULFATE
  172. ALBUTEROL SULFATE [Suspect]
     Active Substance: ALBUTEROL SULFATE
  173. ALBUTEROL SULFATE [Suspect]
     Active Substance: ALBUTEROL SULFATE
  174. ALBUTEROL SULFATE [Suspect]
     Active Substance: ALBUTEROL SULFATE
  175. ALBUTEROL SULFATE [Suspect]
     Active Substance: ALBUTEROL SULFATE
  176. ALBUTEROL SULFATE [Suspect]
     Active Substance: ALBUTEROL SULFATE
     Route: 065
  177. SPIRIVA [Suspect]
     Active Substance: TIOTROPIUM BROMIDE MONOHYDRATE
     Indication: Asthma
  178. SPIRIVA [Suspect]
     Active Substance: TIOTROPIUM BROMIDE MONOHYDRATE
     Dosage: 0.05
  179. SPIRIVA [Suspect]
     Active Substance: TIOTROPIUM BROMIDE MONOHYDRATE
     Dosage: 0.05
  180. SPIRIVA [Suspect]
     Active Substance: TIOTROPIUM BROMIDE MONOHYDRATE
     Dosage: 0.05
  181. SPIRIVA [Suspect]
     Active Substance: TIOTROPIUM BROMIDE MONOHYDRATE
  182. SPIRIVA [Suspect]
     Active Substance: TIOTROPIUM BROMIDE MONOHYDRATE
  183. SPIRIVA [Suspect]
     Active Substance: TIOTROPIUM BROMIDE MONOHYDRATE
  184. SPIRIVA [Suspect]
     Active Substance: TIOTROPIUM BROMIDE MONOHYDRATE
  185. SPIRIVA [Suspect]
     Active Substance: TIOTROPIUM BROMIDE MONOHYDRATE
  186. SPIRIVA [Suspect]
     Active Substance: TIOTROPIUM BROMIDE MONOHYDRATE
  187. SPIRIVA [Suspect]
     Active Substance: TIOTROPIUM BROMIDE MONOHYDRATE
  188. SPIRIVA [Suspect]
     Active Substance: TIOTROPIUM BROMIDE MONOHYDRATE
  189. SPIRIVA [Suspect]
     Active Substance: TIOTROPIUM BROMIDE MONOHYDRATE
  190. TYLENOL [Suspect]
     Active Substance: ACETAMINOPHEN
     Indication: Product used for unknown indication
  191. TYLENOL [Suspect]
     Active Substance: ACETAMINOPHEN
     Dosage: 10
  192. TYLENOL [Suspect]
     Active Substance: ACETAMINOPHEN
     Dosage: 5
  193. TYLENOL [Suspect]
     Active Substance: ACETAMINOPHEN
  194. TYLENOL [Suspect]
     Active Substance: ACETAMINOPHEN
  195. TYLENOL [Suspect]
     Active Substance: ACETAMINOPHEN
  196. TYLENOL [Suspect]
     Active Substance: ACETAMINOPHEN
  197. TYLENOL [Suspect]
     Active Substance: ACETAMINOPHEN
  198. TYLENOL [Suspect]
     Active Substance: ACETAMINOPHEN
  199. TYLENOL [Suspect]
     Active Substance: ACETAMINOPHEN
  200. TYLENOL [Suspect]
     Active Substance: ACETAMINOPHEN
  201. TYLENOL [Suspect]
     Active Substance: ACETAMINOPHEN
  202. UMECLIDINIUM BROMIDE [Suspect]
     Active Substance: UMECLIDINIUM BROMIDE
     Indication: Asthma
     Dosage: 62.5 MICROGRAM, QD
  203. UMECLIDINIUM BROMIDE [Suspect]
     Active Substance: UMECLIDINIUM BROMIDE
     Indication: Asthma
     Dosage: 10
  204. UMECLIDINIUM BROMIDE [Suspect]
     Active Substance: UMECLIDINIUM BROMIDE
     Dosage: 10
  205. UMECLIDINIUM BROMIDE [Suspect]
     Active Substance: UMECLIDINIUM BROMIDE
     Dosage: 10
  206. UMECLIDINIUM BROMIDE [Suspect]
     Active Substance: UMECLIDINIUM BROMIDE
     Dosage: UNK UNK, QD
  207. UMECLIDINIUM BROMIDE [Suspect]
     Active Substance: UMECLIDINIUM BROMIDE
     Dosage: UNK UNK, QD
  208. UMECLIDINIUM BROMIDE [Suspect]
     Active Substance: UMECLIDINIUM BROMIDE
     Dosage: UNK UNK, QD
  209. UMECLIDINIUM BROMIDE [Suspect]
     Active Substance: UMECLIDINIUM BROMIDE
     Dosage: UNK UNK, QD
  210. UMECLIDINIUM BROMIDE [Suspect]
     Active Substance: UMECLIDINIUM BROMIDE
     Dosage: UNK UNK, QD
  211. UMECLIDINIUM BROMIDE [Suspect]
     Active Substance: UMECLIDINIUM BROMIDE
     Dosage: UNK UNK, QD
  212. UMECLIDINIUM BROMIDE [Suspect]
     Active Substance: UMECLIDINIUM BROMIDE
     Dosage: UNK UNK, QD
  213. UMECLIDINIUM BROMIDE [Suspect]
     Active Substance: UMECLIDINIUM BROMIDE
     Dosage: 1 DOSAGE FORM, QD
  214. UMECLIDINIUM BROMIDE [Suspect]
     Active Substance: UMECLIDINIUM BROMIDE
     Dosage: 1 DOSAGE FORM, QD
  215. ZENHALE [Suspect]
     Active Substance: FORMOTEROL FUMARATE\MOMETASONE FUROATE
     Indication: Product used for unknown indication
     Dosage: 2 DOSAGE FORM, BID
  216. ZENHALE [Suspect]
     Active Substance: FORMOTEROL FUMARATE\MOMETASONE FUROATE
     Dosage: UNK UNK, BID
  217. ZENHALE [Suspect]
     Active Substance: FORMOTEROL FUMARATE\MOMETASONE FUROATE
     Dosage: UNK UNK, BID
  218. ZENHALE [Suspect]
     Active Substance: FORMOTEROL FUMARATE\MOMETASONE FUROATE
     Dosage: UNK UNK, BID
  219. ZENHALE [Suspect]
     Active Substance: FORMOTEROL FUMARATE\MOMETASONE FUROATE
     Dosage: 2 DOSAGE FORM, BID
  220. ZENHALE [Suspect]
     Active Substance: FORMOTEROL FUMARATE\MOMETASONE FUROATE
     Dosage: 2 DOSAGE FORM, BID
  221. ZENHALE [Suspect]
     Active Substance: FORMOTEROL FUMARATE\MOMETASONE FUROATE
     Dosage: 2 DOSAGE FORM, BID
  222. ZENHALE [Suspect]
     Active Substance: FORMOTEROL FUMARATE\MOMETASONE FUROATE
     Dosage: 2 DOSAGE FORM, BID
  223. ZENHALE [Suspect]
     Active Substance: FORMOTEROL FUMARATE\MOMETASONE FUROATE
     Dosage: UNK UNK, BID
  224. ZENHALE [Suspect]
     Active Substance: FORMOTEROL FUMARATE\MOMETASONE FUROATE
     Dosage: 2 DOSAGE FORM, BID
  225. ZENHALE [Suspect]
     Active Substance: FORMOTEROL FUMARATE\MOMETASONE FUROATE
     Dosage: 2 DOSAGE FORM, BID
  226. ZENHALE [Suspect]
     Active Substance: FORMOTEROL FUMARATE\MOMETASONE FUROATE
     Dosage: 2 DOSAGE FORM, BID
  227. ZENHALE [Suspect]
     Active Substance: FORMOTEROL FUMARATE\MOMETASONE FUROATE
     Dosage: 2 DOSAGE FORM, BID
  228. ACETAMINOPHEN [Suspect]
     Active Substance: ACETAMINOPHEN
     Indication: Product used for unknown indication
  229. ACETAMINOPHEN [Suspect]
     Active Substance: ACETAMINOPHEN
     Indication: Colitis ulcerative
  230. ACETAMINOPHEN [Suspect]
     Active Substance: ACETAMINOPHEN
  231. ACETAMINOPHEN [Suspect]
     Active Substance: ACETAMINOPHEN
  232. ACETAMINOPHEN [Suspect]
     Active Substance: ACETAMINOPHEN
  233. ACETAMINOPHEN [Suspect]
     Active Substance: ACETAMINOPHEN
  234. ACETAMINOPHEN [Suspect]
     Active Substance: ACETAMINOPHEN
  235. ACETAMINOPHEN [Suspect]
     Active Substance: ACETAMINOPHEN
     Route: 042
  236. ACETAMINOPHEN [Suspect]
     Active Substance: ACETAMINOPHEN
     Route: 042
  237. VEDOLIZUMAB [Suspect]
     Active Substance: VEDOLIZUMAB
  238. NUCALA [Suspect]
     Active Substance: MEPOLIZUMAB
     Indication: Asthma
     Dosage: 100 MILLIGRAM, QMONTH
     Route: 042
     Dates: start: 20191121
  239. FOLATE SODIUM [Concomitant]
     Active Substance: FOLATE SODIUM
     Indication: Product used for unknown indication
     Dosage: 5 MILLIGRAM, QD
     Route: 048
  240. CALCIUM [Concomitant]
     Active Substance: CALCIUM
     Indication: Supplementation therapy
  241. CALCIUM [Concomitant]
     Active Substance: CALCIUM
     Route: 065
  242. VITAMIN B12 [Concomitant]
     Active Substance: CYANOCOBALAMIN
     Indication: Supplementation therapy
     Dosage: 1000 MICROGRAM, QD
     Route: 048
  243. VITAMIN B12 [Concomitant]
     Active Substance: CYANOCOBALAMIN
     Dosage: 1000 MICROGRAM, QD
     Route: 065
  244. VITAMIN D NOS [Concomitant]
     Active Substance: CHOLECALCIFEROL\ERGOCALCIFEROL
     Indication: Supplementation therapy
  245. FERRIC POLYSACCHARIDE COMPLEX [Concomitant]
     Active Substance: FERRIC POLYSACCHARIDE COMPLEX
     Indication: Supplementation therapy
     Dosage: 150 MILLIGRAM, QD
  246. FERRIC POLYSACCHARIDE COMPLEX [Concomitant]
     Active Substance: FERRIC POLYSACCHARIDE COMPLEX
     Dosage: 300 MILLIGRAM, QD
     Route: 048
  247. FERRIC POLYSACCHARIDE COMPLEX [Concomitant]
     Active Substance: FERRIC POLYSACCHARIDE COMPLEX
     Dosage: 150 MILLIGRAM, QD
     Route: 048
  248. CYANOCOBALAMIN [Concomitant]
     Active Substance: CYANOCOBALAMIN
     Indication: Supplementation therapy
     Dosage: 1000 MILLIGRAM, QD
     Route: 048
  249. CYANOCOBALAMIN [Concomitant]
     Active Substance: CYANOCOBALAMIN
     Dosage: 1000 MILLIGRAM, QD
     Route: 048
  250. CYANOCOBALAMIN [Concomitant]
     Active Substance: CYANOCOBALAMIN
     Dosage: 1000 MILLIGRAM, QD
  251. CYANOCOBALAMIN [Concomitant]
     Active Substance: CYANOCOBALAMIN
     Dosage: 1000 MILLIGRAM, QD
  252. CYANOCOBALAMIN [Concomitant]
     Active Substance: CYANOCOBALAMIN
     Dosage: 1000 MILLIGRAM, QD
  253. ERGOCALCIFEROL [Concomitant]
     Active Substance: ERGOCALCIFEROL
     Indication: Supplementation therapy

REACTIONS (31)
  - Interstitial lung disease [Unknown]
  - Systolic dysfunction [Unknown]
  - Pericardial effusion [Unknown]
  - Rectal haemorrhage [Unknown]
  - Vasculitis [Unknown]
  - Abdominal pain [Unknown]
  - Anaemia [Unknown]
  - Asthma [Unknown]
  - Blood test abnormal [Unknown]
  - Chest discomfort [Unknown]
  - Condition aggravated [Unknown]
  - Decreased appetite [Unknown]
  - Dyspnoea [Unknown]
  - Dyspnoea exertional [Unknown]
  - Eosinophilia [Unknown]
  - Gastrointestinal disorder [Unknown]
  - Insomnia [Unknown]
  - Iron deficiency [Unknown]
  - Myalgia [Unknown]
  - Obstructive airways disorder [Unknown]
  - Photophobia [Unknown]
  - Pulmonary function test decreased [Unknown]
  - Wheezing [Unknown]
  - Sinusitis [Unknown]
  - Cough [Unknown]
  - Colitis [Unknown]
  - Headache [Unknown]
  - Treatment noncompliance [Unknown]
  - Blood pressure decreased [Unknown]
  - Hypotension [Unknown]
  - Therapeutic product effect incomplete [Unknown]
